FAERS Safety Report 9928588 (Version 1)
Quarter: 2014Q1

REPORT INFORMATION
  Report Type: Spontaneous
  Country: MX (occurrence: MX)
  Receive Date: 20140227
  Receipt Date: 20140227
  Transmission Date: 20141002
  Serious: Yes (Other)
  Sender: FDA-Public Use
  Company Number: MX-SA-2014SA020096

PATIENT
  Age: 65 Year
  Sex: Female

DRUGS (4)
  1. AVALIDE [Suspect]
     Indication: HYPERTENSION
     Route: 048
     Dates: start: 2008, end: 2009
  2. AVALIDE [Suspect]
     Indication: HYPERTENSION
     Route: 048
     Dates: start: 2009
  3. COAPROVEL [Suspect]
     Indication: HYPERTENSION
     Route: 048
     Dates: start: 2009, end: 2009
  4. JANUMET [Concomitant]
     Indication: TYPE 2 DIABETES MELLITUS
     Route: 048
     Dates: start: 2008

REACTIONS (3)
  - Haematochezia [Recovered/Resolved]
  - Oedema peripheral [Recovered/Resolved]
  - Hiatus hernia [Not Recovered/Not Resolved]
